FAERS Safety Report 7871196-4 (Version None)
Quarter: 2011Q4

REPORT INFORMATION
  Report Type: 
  Country: None (occurrence: None)
  Receive Date: 20111029
  Receipt Date: 20110228
  Transmission Date: 20120403
  Serious: No
  Sender: FDA-Public Use
  Company Number: US-AMGEN-USASP2011007545

PATIENT
  Age: 52 Year
  Sex: Female

DRUGS (1)
  1. ENBREL [Suspect]
     Indication: PSORIASIS
     Dosage: 50 MG, QWK
     Dates: start: 20100215, end: 20110128

REACTIONS (5)
  - SWELLING FACE [None]
  - TOOTHACHE [None]
  - TOOTH INFECTION [None]
  - PSORIASIS [None]
  - DENTAL CARIES [None]
